FAERS Safety Report 4519241-8 (Version None)
Quarter: 2004Q4

REPORT INFORMATION
  Report Type: 
  Country: None (occurrence: None)
  Receive Date: 20041201
  Receipt Date: 20041118
  Transmission Date: 20050328
  Serious: Yes (Disabling)
  Sender: FDA-Public Use
  Company Number: 2004CG01920

PATIENT
  Age: 58 Year
  Sex: Male
  Weight: 58 kg

DRUGS (5)
  1. CRESTOR [Suspect]
     Indication: HYPERCHOLESTEROLAEMIA
     Dosage: 10 MG DAILY PO
     Route: 048
     Dates: start: 20040713, end: 20040826
  2. ISOPTIN [Concomitant]
  3. IKOREL [Concomitant]
  4. ASPIRIN [Concomitant]
  5. LEXOMIL [Concomitant]

REACTIONS (3)
  - ABASIA [None]
  - LUNG DISORDER [None]
  - TENDONITIS [None]
